FAERS Safety Report 23210566 (Version 1)
Quarter: 2023Q4

REPORT INFORMATION
  Report Type: Spontaneous
  Country: US (occurrence: None)
  Receive Date: 20231117
  Receipt Date: 20231117
  Transmission Date: 20240110
  Serious: Yes (Hospitalization)
  Sender: FDA-Public Use
  Company Number: None

PATIENT
  Sex: Female

DRUGS (2)
  1. TADALAFIL [Suspect]
     Active Substance: TADALAFIL
     Indication: Pulmonary arterial hypertension
     Dosage: FREQUENCY : DAILY;?
     Route: 048
     Dates: start: 202308
  2. REMODULIN MDV (PAP) [Concomitant]

REACTIONS (7)
  - Syncope [None]
  - Fall [None]
  - Diarrhoea [None]
  - Vomiting [None]
  - Injection site infection [None]
  - Asthenia [None]
  - Dyspnoea exertional [None]
